FAERS Safety Report 9308359 (Version 1)
Quarter: 2013Q2

REPORT INFORMATION
  Report Type: Spontaneous
  Country: GB (occurrence: GB)
  Receive Date: 20130524
  Receipt Date: 20130524
  Transmission Date: 20140414
  Serious: Yes (Other)
  Sender: FDA-Public Use
  Company Number: GB-GLAXOSMITHKLINE-B0892958A

PATIENT
  Age: 48 Year
  Sex: Male

DRUGS (6)
  1. ELTROMBOPAG [Suspect]
     Indication: IDIOPATHIC THROMBOCYTOPENIC PURPURA
     Route: 065
     Dates: start: 200605
  2. PREDNISOLONE [Concomitant]
     Dates: start: 200409, end: 200701
  3. HYDROCORTISONE [Concomitant]
     Dates: start: 200409, end: 200701
  4. IVIG [Concomitant]
     Dates: start: 200409, end: 200410
  5. TRANEXAMIC ACID [Concomitant]
     Dates: start: 200409
  6. RITUXIMAB [Concomitant]
     Dates: start: 201011, end: 201012

REACTIONS (4)
  - Haemorrhage [Unknown]
  - Platelet count decreased [Unknown]
  - Cushingoid [Unknown]
  - Petechiae [Unknown]
